FAERS Safety Report 13626696 (Version 2)
Quarter: 2017Q3

REPORT INFORMATION
  Report Type: Spontaneous
  Country: JP (occurrence: JP)
  Receive Date: 20170608
  Receipt Date: 20170703
  Transmission Date: 20171127
  Serious: Yes (Hospitalization)
  Sender: FDA-Public Use
  Company Number: JP-ACTELION-A-CH2017-150570

PATIENT
  Age: 36 Year
  Sex: Male

DRUGS (9)
  1. NEORAL [Concomitant]
     Active Substance: CYCLOSPORINE
  2. ADALAT [Concomitant]
     Active Substance: NIFEDIPINE
  3. TAKEPRON [Concomitant]
     Active Substance: LANSOPRAZOLE
  4. EDIROL [Concomitant]
     Active Substance: ELDECALCITOL
  5. ADEMPAS [Concomitant]
     Active Substance: RIOCIGUAT
  6. MESTINON [Concomitant]
     Active Substance: PYRIDOSTIGMINE BROMIDE
  7. OPSUMIT [Suspect]
     Active Substance: MACITENTAN
     Indication: PULMONARY ARTERIAL HYPERTENSION
     Dosage: 10 MG, QD
     Route: 048
     Dates: start: 20160614, end: 20170301
  8. PREDNISOLONE. [Concomitant]
     Active Substance: PREDNISOLONE
  9. OXYGEN. [Concomitant]
     Active Substance: OXYGEN

REACTIONS (4)
  - Haemoglobin decreased [Recovered/Resolved]
  - Iron deficiency anaemia [Recovered/Resolved]
  - Haematocrit decreased [Recovered/Resolved]
  - Red blood cell count decreased [Recovered/Resolved]

NARRATIVE: CASE EVENT DATE: 20170220
